FAERS Safety Report 7789981-6 (Version None)
Quarter: 2011Q3

REPORT INFORMATION
  Report Type: 
  Country: None (occurrence: None)
  Receive Date: 20110930
  Receipt Date: 20110714
  Transmission Date: 20111222
  Serious: No
  Sender: FDA-Public Use
  Company Number: US-ASTRAZENECA-2011SE42602

PATIENT
  Age: 55 Year
  Sex: Female

DRUGS (3)
  1. CALCIUM SUPPLEMENTS [Concomitant]
  2. CRESTOR [Concomitant]
  3. ARIMIDEX [Suspect]
     Route: 048

REACTIONS (3)
  - PAIN IN EXTREMITY [None]
  - MUSCULOSKELETAL STIFFNESS [None]
  - BONE DECALCIFICATION [None]
